FAERS Safety Report 4918911-7 (Version None)
Quarter: 2006Q1

REPORT INFORMATION
  Report Type: 
  Country: None (occurrence: None)
  Receive Date: 20060222
  Receipt Date: 20060206
  Transmission Date: 20060701
  Serious: Yes (Hospitalization, Disabling)
  Sender: FDA-Public Use
  Company Number: BE-MERCK-0602BEL00008

PATIENT
  Age: 80 Year
  Sex: Female

DRUGS (4)
  1. COZAAR [Suspect]
     Indication: HYPERTENSION
     Route: 048
     Dates: start: 19980217
  2. AMLOR [Concomitant]
     Indication: HYPERTENSION
     Route: 048
  3. NONSTEROIDAL ANTI-INFLAMMATORY DRUG (UNSPECIFIED) [Concomitant]
     Indication: OSTEOARTHRITIS
     Route: 048
  4. LORAMET [Concomitant]
     Indication: INSOMNIA
     Route: 048

REACTIONS (2)
  - AORTIC VALVE STENOSIS [None]
  - VENTRICULAR HYPERTROPHY [None]
